FAERS Safety Report 17145288 (Version 1)
Quarter: 2019Q4

REPORT INFORMATION
  Report Type: Spontaneous
  Country: US (occurrence: US)
  Receive Date: 20191211
  Receipt Date: 20191211
  Transmission Date: 20200122
  Serious: Yes (Hospitalization, Disabling)
  Sender: FDA-Public Use
  Company Number: None

PATIENT
  Age: 61 Year
  Sex: Female
  Weight: 92.25 kg

DRUGS (13)
  1. TOPIRAMATE. [Concomitant]
     Active Substance: TOPIRAMATE
  2. VITAMIN D [Concomitant]
     Active Substance: VITAMIN D NOS
  3. DULOXETINE HCL DR 30 MG CAP COMMON BRAND(S): CYMBALTA [Suspect]
     Active Substance: DULOXETINE HYDROCHLORIDE
     Indication: MYALGIA
     Dosage: ?          QUANTITY:1 CAPSULE(S);?
     Route: 048
     Dates: start: 20191122, end: 20191209
  4. CARBIDOPA/LEVODOPA 25-100 MG [Concomitant]
     Active Substance: CARBIDOPA\LEVODOPA
  5. NAPROXEN 500 MG AMNEAL PHARMACEUTICALS [Concomitant]
     Active Substance: NAPROXEN
  6. DULOXETINE HCL DR 30 MG CAP COMMON BRAND(S): CYMBALTA [Suspect]
     Active Substance: DULOXETINE HYDROCHLORIDE
     Indication: POST-TRAUMATIC STRESS DISORDER
     Dosage: ?          QUANTITY:1 CAPSULE(S);?
     Route: 048
     Dates: start: 20191122, end: 20191209
  7. VITAMIN SUPER B COMPLEX [Concomitant]
  8. MULTIVITAMINS [Concomitant]
     Active Substance: VITAMINS
  9. CARVIDOPA/LEVODOPA 25-100 ER [Concomitant]
  10. VISIONS VITAMINS 2 REDS [Concomitant]
  11. PROBIOTICS [Concomitant]
     Active Substance: PROBIOTICS NOS
  12. DULOXETINE HCL DR 30 MG CAP COMMON BRAND(S): CYMBALTA [Suspect]
     Active Substance: DULOXETINE HYDROCHLORIDE
     Indication: ANXIETY
     Dosage: ?          QUANTITY:1 CAPSULE(S);?
     Route: 048
     Dates: start: 20191122, end: 20191209
  13. DULOXETINE HCL DR 30 MG CAP COMMON BRAND(S): CYMBALTA [Suspect]
     Active Substance: DULOXETINE HYDROCHLORIDE
     Indication: DEPRESSION
     Dosage: ?          QUANTITY:1 CAPSULE(S);?
     Route: 048
     Dates: start: 20191122, end: 20191209

REACTIONS (7)
  - Parosmia [None]
  - Hallucination [None]
  - Tremor [None]
  - Paraesthesia [None]
  - Paranoia [None]
  - Irritability [None]
  - Product substitution issue [None]

NARRATIVE: CASE EVENT DATE: 20191209
